FAERS Safety Report 21622209 (Version 1)
Quarter: 2022Q4

REPORT INFORMATION
  Report Type: Other
  Country: US (occurrence: US)
  Receive Date: 20221121
  Receipt Date: 20221121
  Transmission Date: 20230112
  Serious: Yes (Hospitalization, Other)
  Sender: FDA-Public Use
  Company Number: US-HLS-202202238

PATIENT
  Age: 36 Year
  Sex: Male

DRUGS (4)
  1. CLOZAPINE [Suspect]
     Active Substance: CLOZAPINE
     Route: 065
  2. CLOZAPINE [Suspect]
     Active Substance: CLOZAPINE
     Dosage: 400 MG AT NIGHT
     Route: 048
  3. HALOPERIDOL [Concomitant]
     Active Substance: HALOPERIDOL
     Dosage: AT NIGHT
     Route: 048
  4. HALOPERIDOL [Concomitant]
     Active Substance: HALOPERIDOL
     Dosage: 20 MG BY MOUTH DAILY AND 10 MG AT NIGHT
     Route: 065

REACTIONS (11)
  - Hallucination, auditory [Unknown]
  - Cough [Unknown]
  - COVID-19 [Unknown]
  - Pyrexia [Unknown]
  - Mania [Unknown]
  - Treatment noncompliance [Unknown]
  - Myalgia [Unknown]
  - Poverty of speech [Unknown]
  - Psychotic disorder [Unknown]
  - Thought blocking [Unknown]
  - Aggression [Unknown]
